FAERS Safety Report 8588121-3 (Version None)
Quarter: 2012Q3

REPORT INFORMATION
  Report Type: 
  Country: None (occurrence: None)
  Receive Date: 20120813
  Receipt Date: 20120808
  Transmission Date: 20120928
  Serious: No
  Sender: FDA-Public Use
  Company Number: US-PFIZER INC-2012193858

PATIENT
  Sex: Male

DRUGS (3)
  1. CELEBREX [Suspect]
     Indication: JOINT INJURY
     Dosage: UNK, DAILY
     Dates: start: 20120101
  2. CHANTIX [Suspect]
     Dosage: UNK
     Dates: start: 20120101
  3. ALEVE [Suspect]
     Dosage: UNK

REACTIONS (1)
  - HEART RATE INCREASED [None]
